FAERS Safety Report 25987544 (Version 1)
Quarter: 2025Q4

REPORT INFORMATION
  Report Type: Spontaneous
  Country: BR (occurrence: BR)
  Receive Date: 20251103
  Receipt Date: 20251103
  Transmission Date: 20260118
  Serious: Yes (Other)
  Sender: GENMAB
  Company Number: BR-ABBVIE-6520095

PATIENT
  Sex: Male

DRUGS (1)
  1. EPCORITAMAB [Suspect]
     Active Substance: EPCORITAMAB
     Indication: Richter^s syndrome
     Dosage: UNK
     Route: 058

REACTIONS (2)
  - Richter^s syndrome [Unknown]
  - Influenza [Unknown]
